FAERS Safety Report 9880607 (Version 1)
Quarter: 2014Q1

REPORT INFORMATION
  Report Type: Spontaneous
  Country: JP (occurrence: None)
  Receive Date: 20140205
  Receipt Date: 20140205
  Transmission Date: 20141002
  Serious: Yes (Other)
  Sender: FDA-Public Use
  Company Number: AXC-2014-000061

PATIENT
  Sex: 0

DRUGS (3)
  1. URSODEOXYCHOLIC ACID [Suspect]
     Indication: FOETAL EXPOSURE DURING PREGNANCY
     Route: 064
  2. DEXCHLORPHENIRAMINE MALEATE [Concomitant]
  3. FOLIC ACID [Concomitant]

REACTIONS (3)
  - Maternal drugs affecting foetus [None]
  - Ascites [None]
  - Abortion induced [None]
